FAERS Safety Report 9122747 (Version 1)
Quarter: 2013Q1

REPORT INFORMATION
  Report Type: Spontaneous
  Country: US (occurrence: None)
  Receive Date: 20130225
  Receipt Date: 20130225
  Transmission Date: 20140127
  Serious: Yes (Disabling, Other)
  Sender: FDA-Public Use
  Company Number: None

PATIENT
  Age: 70 Year
  Sex: Female
  Weight: 63.96 kg

DRUGS (2)
  1. FOSOMAX [Suspect]
     Indication: OSTEOPOROSIS
     Route: 048
     Dates: start: 19950101, end: 20000101
  2. BONIVA [Suspect]
     Indication: OSTEOPOROSIS
     Dosage: 1 MONTHLY PO
     Route: 048
     Dates: start: 20000101, end: 20121101

REACTIONS (3)
  - Gait disturbance [None]
  - Fall [None]
  - Femur fracture [None]
